FAERS Safety Report 9868105 (Version 2)
Quarter: 2014Q1

REPORT INFORMATION
  Report Type: Spontaneous
  Country: CH (occurrence: CH)
  Receive Date: 20140204
  Receipt Date: 20140204
  Transmission Date: 20141002
  Serious: Yes (Other)
  Sender: FDA-Public Use
  Company Number: PHHY2014CH010587

PATIENT
  Sex: 0

DRUGS (2)
  1. GILENYA [Suspect]
     Dosage: 0.5 MG,
     Dates: start: 201212, end: 20131215
  2. CITALOPRAM [Concomitant]

REACTIONS (5)
  - Depression [Unknown]
  - Apathy [Unknown]
  - Suicidal ideation [Unknown]
  - Dysstasia [Not Recovered/Not Resolved]
  - Fatigue [Unknown]
